FAERS Safety Report 15080397 (Version 1)
Quarter: 2018Q2

REPORT INFORMATION
  Report Type: Other
  Country: HR (occurrence: HR)
  Receive Date: 20180628
  Receipt Date: 20180628
  Transmission Date: 20180711
  Serious: Yes (Other)
  Sender: FDA-Public Use
  Company Number: HR-CELLTRION INC.-2018HR020738

PATIENT

DRUGS (9)
  1. FOLACIN                            /00024201/ [Concomitant]
     Active Substance: FOLIC ACID
     Dosage: 5 MG, 1/WEEK
     Route: 048
  2. IBUPROFEN FARMALIDER [Concomitant]
     Indication: RHEUMATOID ARTHRITIS
     Dosage: 800 MG,2-3 X 800 MG
     Route: 048
  3. SALAZOPYRIN [Concomitant]
     Active Substance: SULFASALAZINE
     Dosage: 2000 MG
     Route: 048
     Dates: start: 201603
  4. METHOTREXATE. [Concomitant]
     Active Substance: METHOTREXATE
     Indication: RHEUMATOID ARTHRITIS
     Dosage: 20 MG, 1/WEEK
     Dates: start: 201409
  5. REMSIMA [Suspect]
     Active Substance: INFLIXIMAB
     Dosage: 200 MG,FROM JUL-2016 EVERY 8 WEEKS, AFTER FEB-2017 EVERY 6 WEEKS
     Route: 042
  6. REMSIMA [Suspect]
     Active Substance: INFLIXIMAB
     Dosage: 200 MG,ROM JUL-2016 EVERY 8 WEEKS, AFTER FEB-2017 EVERY 6 WEEKS
     Route: 042
     Dates: start: 20180401, end: 20180401
  7. REMSIMA [Suspect]
     Active Substance: INFLIXIMAB
     Indication: RHEUMATOID ARTHRITIS
     Dosage: 200 MG,ROM JUL-2016 EVERY 8 WEEKS, AFTER FEB-2017 EVERY 6 WEEKS
     Dates: start: 20160701, end: 20160701
  8. DECORTIN [Concomitant]
     Active Substance: PREDNISONE
     Indication: RHEUMATOID ARTHRITIS
     Dosage: 10 MG
     Route: 048
     Dates: start: 201401
  9. MISAR                              /00595201/ [Concomitant]
     Active Substance: ALPRAZOLAM
     Dosage: 0.25 MG
     Route: 048

REACTIONS (2)
  - Rheumatoid arthritis [Recovering/Resolving]
  - Pustular psoriasis [Recovering/Resolving]

NARRATIVE: CASE EVENT DATE: 20170201
